FAERS Safety Report 6937084-2 (Version None)
Quarter: 2010Q3

REPORT INFORMATION
  Report Type: 
  Country: None (occurrence: None)
  Receive Date: 20100823
  Receipt Date: 20100818
  Transmission Date: 20110219
  Serious: Yes (Hospitalization)
  Sender: FDA-Public Use
  Company Number: PHHO2010US03610

PATIENT
  Sex: Male
  Weight: 104.3 kg

DRUGS (7)
  1. BLINDED ACZ885 ACZ+ [Suspect]
     Indication: TYPE 2 DIABETES MELLITUS
     Dosage: CODE NOT BROKEN
     Route: 048
     Dates: start: 20090728, end: 20100225
  2. BLINDED NO TREATMENT RECEIVED NOMED [Suspect]
     Indication: TYPE 2 DIABETES MELLITUS
     Dosage: CODE NOT BROKEN
     Route: 048
     Dates: start: 20090728, end: 20100225
  3. BLINDED PLACEBO COMP-PLA+ [Suspect]
     Indication: TYPE 2 DIABETES MELLITUS
     Dosage: CODE NOT BROKEN
     Route: 048
     Dates: start: 20090728, end: 20100225
  4. METOPROLOL SUCCINATE [Concomitant]
     Indication: HYPERTENSION
     Dosage: UNK
  5. LISINOPRIL [Concomitant]
     Indication: HYPERTENSION
     Dosage: UNK
  6. ASPIRIN [Concomitant]
     Indication: PROPHYLAXIS
     Dosage: UNK
  7. METFORMIN [Concomitant]

REACTIONS (7)
  - ALTERED STATE OF CONSCIOUSNESS [None]
  - HAEMORRHAGE INTRACRANIAL [None]
  - HAEMORRHAGIC STROKE [None]
  - MOTOR DYSFUNCTION [None]
  - NEPHROLITHIASIS [None]
  - NEPHROSTOMY TUBE PLACEMENT [None]
  - UROSEPSIS [None]
